FAERS Safety Report 8995257 (Version 1)
Quarter: 2012Q4

REPORT INFORMATION
  Report Type: Spontaneous
  Country: US (occurrence: None)
  Receive Date: 20121221
  Receipt Date: 20121221
  Transmission Date: 20130627
  Serious: Yes (Hospitalization)
  Sender: FDA-Public Use
  Company Number: TPA2012A09863

PATIENT
  Age: 77 Year
  Sex: Female
  Weight: 72.58 kg

DRUGS (4)
  1. ULORIC (FEBUXOSTAT) [Suspect]
     Indication: GOUT
     Route: 048
     Dates: start: 122011
  2. LASIX (FUROSEMIDE) [Concomitant]
  3. POTASSIUM (POTASSIUM) [Concomitant]
  4. LABETALOL (LABETALOL) [Concomitant]

REACTIONS (1)
  - Cardiac failure congestive [None]
